FAERS Safety Report 6127217-2 (Version None)
Quarter: 2009Q1

REPORT INFORMATION
  Report Type: 
  Country: None (occurrence: None)
  Receive Date: 20090320
  Receipt Date: 20090311
  Transmission Date: 20090719
  Serious: Yes (Other)
  Sender: FDA-Public Use
  Company Number: US-JNJCH-2009006375

PATIENT
  Sex: Female

DRUGS (1)
  1. LISTERINE SMART RINSE BERRY SHIELD [Suspect]
     Indication: DENTAL DISORDER PROPHYLAXIS
     Dosage: TEXT:10 ML TWO TIMES
     Route: 050

REACTIONS (5)
  - GINGIVAL INFECTION [None]
  - HYPERSENSITIVITY [None]
  - ORAL PAIN [None]
  - TOOTH INFECTION [None]
  - TOOTHACHE [None]
